FAERS Safety Report 4659724-3 (Version None)
Quarter: 2005Q2

REPORT INFORMATION
  Report Type: 
  Country: None (occurrence: None)
  Receive Date: 20050420
  Receipt Date: 20050310
  Transmission Date: 20051028
  Serious: No
  Sender: FDA-Public Use
  Company Number: PHEH2005US03069

PATIENT
  Age: 85 Year
  Sex: Male

DRUGS (2)
  1. ENABLEX [Suspect]
     Dosage: 15 MG, QD, UNK
     Dates: start: 20050228
  2. PROSED/DS(ATROPINE SULFATE, BENZOIC ACID, HYOSCYAMINE SULFATE, METHENA [Concomitant]

REACTIONS (1)
  - VISION BLURRED [None]
